FAERS Safety Report 18770110 (Version 1)
Quarter: 2021Q1

REPORT INFORMATION
  Report Type: Spontaneous
  Country: NL (occurrence: NL)
  Receive Date: 20210122
  Receipt Date: 20210122
  Transmission Date: 20210419
  Serious: Yes (Congenital Anomaly, Other)
  Sender: FDA-Public Use
  Company Number: NL-AUROBINDO-AUR-APL-2021-002427

PATIENT

DRUGS (1)
  1. CITALOPRAM 20 MG FILM COATED TABLETS [Suspect]
     Active Substance: CITALOPRAM HYDROBROMIDE
     Indication: ANXIETY
     Dosage: 20 MILLIGRAM, ONCE A DAY (1DD1)
     Route: 064

REACTIONS (2)
  - Maternal exposure during pregnancy [Unknown]
  - Gastroschisis [Not Recovered/Not Resolved]
